FAERS Safety Report 8119450-5 (Version None)
Quarter: 2011Q4

REPORT INFORMATION
  Report Type: 
  Country: None (occurrence: None)
  Receive Date: 20111227
  Receipt Date: 20111031
  Transmission Date: 20120403
  Serious: No
  Sender: FDA-Public Use
  Company Number: PHEH2011US05409

PATIENT
  Age: 61 Year
  Sex: Female
  Weight: 58.5 kg

DRUGS (4)
  1. PREDNISONE TAB [Concomitant]
  2. HYDROCODONE BITARTRATE + ACETAMINOPHEN [Concomitant]
  3. CLONAZEPAM [Concomitant]
  4. GILENYA [Suspect]
     Indication: MULTIPLE SCLEROSIS
     Dosage: 0.5 MG, QD, ORAL
     Route: 048
     Dates: start: 20110923

REACTIONS (2)
  - VISION BLURRED [None]
  - FATIGUE [None]
